FAERS Safety Report 10143214 (Version 1)
Quarter: 2014Q2

REPORT INFORMATION
  Report Type: Spontaneous
  Country: GB (occurrence: GB)
  Receive Date: 20140430
  Receipt Date: 20140430
  Transmission Date: 20141212
  Serious: Yes (Death)
  Sender: FDA-Public Use
  Company Number: GB-JNJFOC-20140420563

PATIENT
  Age: 68 Year
  Sex: Female
  Weight: 113.5 kg

DRUGS (13)
  1. XARELTO [Suspect]
     Indication: ATRIAL FIBRILLATION
     Route: 048
     Dates: start: 20130703, end: 20140101
  2. XARELTO [Suspect]
     Indication: CEREBROVASCULAR ACCIDENT PROPHYLAXIS
     Route: 048
     Dates: start: 20130703, end: 20140101
  3. ALLOPURINOL [Concomitant]
     Route: 065
     Dates: start: 20120905
  4. FUROSEMIDE [Concomitant]
     Route: 065
     Dates: start: 20060719
  5. CITALOPRAM [Concomitant]
     Route: 065
     Dates: start: 20080709
  6. OMEPRAZOLE [Concomitant]
     Route: 065
     Dates: start: 20120511
  7. SALBUTAMOL [Concomitant]
     Route: 065
     Dates: start: 20100421
  8. CO-CODAMOL [Concomitant]
     Route: 065
     Dates: start: 20131107
  9. AMLODIPINE [Concomitant]
     Route: 065
     Dates: start: 20130624
  10. LEVOTHYROXINE [Concomitant]
     Route: 065
     Dates: start: 20030818
  11. BISOPROLOL [Concomitant]
     Route: 065
     Dates: start: 20130423
  12. BECLOMETHASONE [Concomitant]
     Route: 065
  13. SIMVASTATIN [Concomitant]
     Route: 065
     Dates: start: 20090804

REACTIONS (1)
  - Fall [Fatal]
